FAERS Safety Report 10215131 (Version 1)
Quarter: 2014Q2

REPORT INFORMATION
  Report Type: Spontaneous
  Country: PL (occurrence: PL)
  Receive Date: 20140603
  Receipt Date: 20140603
  Transmission Date: 20141212
  Serious: Yes (Hospitalization, Other)
  Sender: FDA-Public Use
  Company Number: PL-ABBVIE-14P-129-1243710-00

PATIENT
  Age: 35 Year
  Sex: Female
  Weight: 53.5 kg

DRUGS (2)
  1. KALETRA 200/50 [Suspect]
     Indication: HIV INFECTION
     Dosage: 800/200
     Dates: start: 20080409
  2. LAZIVIR [Suspect]
     Indication: HIV INFECTION
     Dosage: 600/300
     Dates: start: 20131118, end: 20140129

REACTIONS (3)
  - Foetal death [Unknown]
  - Anaemia [Unknown]
  - Maternal drugs affecting foetus [None]
